FAERS Safety Report 5302842-7 (Version None)
Quarter: 2007Q2

REPORT INFORMATION
  Report Type: 
  Country: None (occurrence: None)
  Receive Date: 20070417
  Receipt Date: 20070417
  Transmission Date: 20071010
  Serious: Yes (Hospitalization)
  Sender: FDA-Public Use
  Company Number: None

PATIENT
  Sex: Male

DRUGS (5)
  1. ETODOLAC [Suspect]
     Indication: ARTHRITIS
     Dosage: 400MG BID PO
     Route: 048
     Dates: start: 20060721
  2. IBUPROFEN [Suspect]
     Indication: PAIN
     Dosage: OTC USE PO
     Route: 048
  3. METOPROLOL SUCCINATE [Concomitant]
  4. VARDENAFIL [Concomitant]
  5. LISINOPRIL [Concomitant]

REACTIONS (2)
  - ASTHENIA [None]
  - GASTROINTESTINAL HAEMORRHAGE [None]
